FAERS Safety Report 5134197-5 (Version None)
Quarter: 2006Q4

REPORT INFORMATION
  Report Type: 
  Country: None (occurrence: None)
  Receive Date: 20061019
  Receipt Date: 20060925
  Transmission Date: 20070319
  Serious: Yes (Hospitalization)
  Sender: FDA-Public Use
  Company Number: 2006RR-03883

PATIENT
  Age: 58 Year
  Sex: Female
  Weight: 63 kg

DRUGS (4)
  1. AMOXICILLIN + CLAVULANATE POTASSIUM [Suspect]
     Indication: OTITIS EXTERNA
     Dosage: 750 MG, TID, ORAL
     Route: 048
     Dates: start: 20060731, end: 20060806
  2. NICOTINE [Concomitant]
  3. OTOMIZE [Concomitant]
  4. SALBUTAMOL (SALBUTAMOL) [Concomitant]

REACTIONS (1)
  - JAUNDICE [None]
